FAERS Safety Report 17826081 (Version 1)
Quarter: 2020Q2

REPORT INFORMATION
  Report Type: Spontaneous
  Country: FR (occurrence: FR)
  Receive Date: 20200526
  Receipt Date: 20200526
  Transmission Date: 20200714
  Serious: Yes (Hospitalization)
  Sender: FDA-Public Use
  Company Number: FR-CHIESI USA, INC.-FR-2020CHI000333

PATIENT

DRUGS (4)
  1. CANGRELOR [Suspect]
     Active Substance: CANGRELOR
     Indication: STENT PLACEMENT
     Dosage: 30 ?G/KG, UNK
     Route: 040
  2. ASPIRIN                            /00002701/ [Concomitant]
     Active Substance: ASPIRIN
     Indication: PRODUCT USED FOR UNKNOWN INDICATION
     Dosage: UNK
     Route: 065
  3. CANGRELOR [Suspect]
     Active Substance: CANGRELOR
     Dosage: 0.75 UNK, UNK
     Route: 042
  4. CANGRELOR [Suspect]
     Active Substance: CANGRELOR
     Indication: OFF LABEL USE
     Dosage: 4 UNK, UNK
     Route: 042

REACTIONS (4)
  - Intentional product use issue [Recovered/Resolved]
  - Haemorrhage intracranial [Unknown]
  - Inappropriate schedule of product administration [Unknown]
  - Off label use [Recovered/Resolved]
